FAERS Safety Report 9509486 (Version 1)
Quarter: 2013Q3

REPORT INFORMATION
  Report Type: Spontaneous
  Country: US (occurrence: US)
  Receive Date: 20130909
  Receipt Date: 20130909
  Transmission Date: 20140515
  Serious: No
  Sender: FDA-Public Use
  Company Number: US-BRISTOL-MYERS SQUIBB COMPANY-18953216

PATIENT
  Age: 62 Year
  Sex: Male
  Weight: 81.63 kg

DRUGS (5)
  1. ABILIFY TABS 2 MG [Suspect]
  2. PROZAC [Concomitant]
  3. WELLBUTRIN [Concomitant]
  4. GABAPENTIN [Concomitant]
  5. DEPAKOTE [Concomitant]

REACTIONS (1)
  - Weight increased [Unknown]
